FAERS Safety Report 7004801-5 (Version None)
Quarter: 2010Q3

REPORT INFORMATION
  Report Type: 
  Country: None (occurrence: None)
  Receive Date: 20100921
  Receipt Date: 20100908
  Transmission Date: 20110219
  Serious: Yes (Other)
  Sender: FDA-Public Use
  Company Number: US-CELGENEUS-163-21880-10090499

PATIENT
  Sex: Male

DRUGS (6)
  1. REVLIMID [Suspect]
     Indication: MULTIPLE MYELOMA
     Route: 048
     Dates: start: 20100601, end: 20100101
  2. REVLIMID [Suspect]
     Route: 048
     Dates: start: 20100101, end: 20100902
  3. LISINOPRIL [Concomitant]
     Indication: PRODUCT USED FOR UNKNOWN INDICATION
     Route: 065
  4. HYDROCHLOROTHIAZIDE [Concomitant]
     Indication: PRODUCT USED FOR UNKNOWN INDICATION
     Route: 065
  5. DEXAMETHASONE [Concomitant]
     Indication: PRODUCT USED FOR UNKNOWN INDICATION
     Dosage: 4 X 5MG
     Route: 048
  6. ASPIRIN [Concomitant]
     Indication: PRODUCT USED FOR UNKNOWN INDICATION
     Route: 065

REACTIONS (10)
  - CHILLS [None]
  - DYSPHONIA [None]
  - FATIGUE [None]
  - FULL BLOOD COUNT DECREASED [None]
  - MUSCLE SPASMS [None]
  - RASH [None]
  - SCOTOMA [None]
  - SKIN EXFOLIATION [None]
  - SKIN TIGHTNESS [None]
  - VISUAL FIELD DEFECT [None]
